FAERS Safety Report 20348721 (Version 3)
Quarter: 2022Q2

REPORT INFORMATION
  Report Type: Report from Study
  Country: DE (occurrence: DE)
  Receive Date: 20220119
  Receipt Date: 20220427
  Transmission Date: 20220721
  Serious: Yes (Hospitalization)
  Sender: FDA-Public Use
  Company Number: DE-SA-SAC20220112000982

PATIENT
  Age: 44 Year
  Sex: Male

DRUGS (2)
  1. TERIFLUNOMIDE [Suspect]
     Active Substance: TERIFLUNOMIDE
     Indication: Multiple sclerosis
     Dosage: 14 MG, QD
     Route: 048
     Dates: start: 202109, end: 202202
  2. COPAXONE [Concomitant]
     Active Substance: GLATIRAMER ACETATE
     Indication: Multiple sclerosis
     Dosage: UNK

REACTIONS (5)
  - Abdominal pain [Recovered/Resolved]
  - Gastrointestinal inflammation [Recovered/Resolved]
  - Hepatic enzyme increased [Recovered/Resolved]
  - Gastrointestinal inflammation [Recovered/Resolved]
  - Diverticulum intestinal [Unknown]

NARRATIVE: CASE EVENT DATE: 20211201
